FAERS Safety Report 7237785-5 (Version None)
Quarter: 2011Q1

REPORT INFORMATION
  Report Type: 
  Country: None (occurrence: None)
  Receive Date: 20110121
  Receipt Date: 20110110
  Transmission Date: 20110831
  Serious: Yes (Death, Hospitalization)
  Sender: FDA-Public Use
  Company Number: IE-ROCHE-752443

PATIENT
  Age: 48 Year
  Sex: Female

DRUGS (3)
  1. HERCEPTIN [Suspect]
     Dosage: ONCE WEEKLY FOR 3 WEEK CYCLE
     Route: 065
  2. LAPATINIB [Suspect]
     Dosage: DAILY
     Route: 048
  3. TAXOTERE [Suspect]
     Dosage: ON DAY 1 OF THE CYCLE
     Route: 065

REACTIONS (6)
  - PNEUMONIA [None]
  - PNEUMOTHORAX [None]
  - COLLAPSE OF LUNG [None]
  - LYMPHANGIOLEIOMYOMATOSIS [None]
  - RESPIRATORY FAILURE [None]
  - PNEUMOMEDIASTINUM [None]
